FAERS Safety Report 6607696-4 (Version None)
Quarter: 2010Q1

REPORT INFORMATION
  Report Type: 
  Country: None (occurrence: None)
  Receive Date: 20100301
  Receipt Date: 20100218
  Transmission Date: 20100710
  Serious: No
  Sender: FDA-Public Use
  Company Number: DE-ASTRAZENECA-2010SE07974

PATIENT
  Age: 45 Year
  Sex: Female

DRUGS (11)
  1. SEROQUEL [Suspect]
     Route: 048
     Dates: start: 20091001, end: 20091001
  2. SEROQUEL [Suspect]
     Route: 048
     Dates: start: 20091002, end: 20091003
  3. SEROQUEL [Suspect]
     Route: 048
     Dates: start: 20091004, end: 20091004
  4. SEROQUEL [Suspect]
     Route: 048
     Dates: start: 20091005, end: 20091007
  5. TAVOR [Concomitant]
     Dosage: 3-1 MG
     Route: 048
     Dates: start: 20090907, end: 20100110
  6. ZOPICLON [Concomitant]
     Route: 048
     Dates: start: 20090801
  7. TREVILOR [Concomitant]
     Route: 048
     Dates: start: 20090922, end: 20090925
  8. TREVILOR [Concomitant]
     Route: 048
     Dates: start: 20090926, end: 20090928
  9. TREVILOR [Concomitant]
     Route: 048
     Dates: start: 20090929, end: 20090929
  10. TREVILOR [Concomitant]
     Route: 048
     Dates: start: 20090930, end: 20091018
  11. TREVILOR [Concomitant]
     Route: 048
     Dates: start: 20091019, end: 20091020

REACTIONS (1)
  - NEUTROPENIA [None]
